FAERS Safety Report 5750566-4 (Version None)
Quarter: 2008Q2

REPORT INFORMATION
  Report Type: 
  Country: None (occurrence: None)
  Receive Date: 20080523
  Receipt Date: 20080523
  Transmission Date: 20081010
  Serious: Yes (Death)
  Sender: FDA-Public Use
  Company Number: None

PATIENT
  Sex: Female
  Weight: 45.3597 kg

DRUGS (4)
  1. SINGULAIR [Suspect]
     Indication: ASTHMA
     Dosage: 10 MG ONCE PER DAY
     Dates: start: 20030101, end: 20050709
  2. SINGULAIR [Suspect]
     Indication: SEASONAL ALLERGY
     Dosage: 10 MG ONCE PER DAY
     Dates: start: 20030101, end: 20050709
  3. ALBUTERAL [Concomitant]
  4. ADVAIR DISKUS 100/50 [Concomitant]

REACTIONS (1)
  - COMPLETED SUICIDE [None]
